FAERS Safety Report 20605849 (Version 1)
Quarter: 2022Q1

REPORT INFORMATION
  Report Type: Spontaneous
  Country: JP (occurrence: JP)
  Receive Date: 20220317
  Receipt Date: 20220317
  Transmission Date: 20220423
  Serious: Yes (Other)
  Sender: FDA-Public Use
  Company Number: JP-SA-2022SA080358

PATIENT
  Age: 21 Year
  Sex: Female

DRUGS (2)
  1. DUPILUMAB [Suspect]
     Active Substance: DUPILUMAB
     Indication: Dermatitis atopic
     Dosage: 300 MG, QOW
     Route: 058
  2. DUPILUMAB [Suspect]
     Active Substance: DUPILUMAB
     Indication: Asthma
     Dosage: 600 MG LOADING DOSE
     Route: 058

REACTIONS (10)
  - Systemic lupus erythematosus [Recovered/Resolved]
  - Diffuse alopecia [Recovered/Resolved]
  - Arthralgia [Recovered/Resolved]
  - Lymphopenia [Recovered/Resolved]
  - Hypocomplementaemia [Recovered/Resolved]
  - Skin lesion [Recovered/Resolved]
  - Dermatitis [Recovered/Resolved]
  - Rash [Recovered/Resolved]
  - Atypical pneumonia [Unknown]
  - Herpes zoster [Unknown]
